FAERS Safety Report 6042067-3 (Version None)
Quarter: 2009Q1

REPORT INFORMATION
  Report Type: 
  Country: None (occurrence: None)
  Receive Date: 20090116
  Receipt Date: 20080423
  Transmission Date: 20090719
  Serious: No
  Sender: FDA-Public Use
  Company Number: US-BAYER-200812036BCC

PATIENT
  Sex: Female
  Weight: 57 kg

DRUGS (1)
  1. FINACEA [Suspect]
     Indication: ACNE

REACTIONS (1)
  - APPLICATION SITE RASH [None]
